FAERS Safety Report 17986304 (Version 11)
Quarter: 2020Q4

REPORT INFORMATION
  Report Type: Report from Study
  Country: GB (occurrence: GB)
  Receive Date: 20200706
  Receipt Date: 20201203
  Transmission Date: 20210113
  Serious: Yes (Death, Congenital Anomaly, Other)
  Sender: FDA-Public Use
  Company Number: GB-B.I. PHARMACEUTICALS,INC./RIDGEFIELD-2020-BI-033485

PATIENT

DRUGS (7)
  1. VIRAMUNE [Suspect]
     Active Substance: NEVIRAPINE
     Indication: PRODUCT USED FOR UNKNOWN INDICATION
     Dosage: 400 MILLIGRAM, QD
     Route: 064
     Dates: start: 20000122, end: 200406
  2. VIDEX [Suspect]
     Active Substance: DIDANOSINE
     Indication: PRODUCT USED FOR UNKNOWN INDICATION
     Dosage: 400 MILLIGRAM, QD
     Route: 064
     Dates: start: 20040122, end: 200406
  3. SEBIVO [Suspect]
     Active Substance: TELBIVUDINE
     Indication: PRODUCT USED FOR UNKNOWN INDICATION
     Dosage: UNK
     Route: 064
  4. DIDANOSINE. [Suspect]
     Active Substance: DIDANOSINE
     Indication: HIV INFECTION
     Dosage: 400 MG, QD, FREQUENCY OF PRODUCT : 1D/400 MG/DAY
     Route: 064
     Dates: start: 20040122
  5. RETROVIR [Suspect]
     Active Substance: ZIDOVUDINE
     Indication: PRODUCT USED FOR UNKNOWN INDICATION
     Dosage: 250 MILLIGRAM, BID
     Route: 064
     Dates: start: 20000122, end: 200406
  6. NORVIR [Suspect]
     Active Substance: RITONAVIR
     Indication: PRODUCT USED FOR UNKNOWN INDICATION
     Dosage: 500 MILLIGRAM, QD
     Route: 064
     Dates: start: 20000122
  7. RITONAVIR. [Suspect]
     Active Substance: RITONAVIR
     Indication: HIV INFECTION
     Dosage: 500 MILLIGRAM DAILY
     Route: 064
     Dates: start: 20000122

REACTIONS (6)
  - Stillbirth [Fatal]
  - Congenital central nervous system anomaly [Fatal]
  - Brain malformation [Fatal]
  - Foetal exposure during pregnancy [Unknown]
  - Pulmonary hypoplasia [Fatal]
  - Congenital central nervous system anomaly [Fatal]

NARRATIVE: CASE EVENT DATE: 200406
